FAERS Safety Report 7962778-X (Version None)
Quarter: 2011Q4

REPORT INFORMATION
  Report Type: 
  Country: None (occurrence: None)
  Receive Date: 20111207
  Receipt Date: 20111123
  Transmission Date: 20120403
  Serious: Yes (Other)
  Sender: FDA-Public Use
  Company Number: US-ACTELION-A-CH2011-57522

PATIENT
  Age: 34 Year
  Sex: Male

DRUGS (2)
  1. TRACLEER [Suspect]
     Indication: SKIN ULCER
     Dosage: 125 MG, BID
     Route: 048
  2. PREDNISONE TAB [Concomitant]

REACTIONS (4)
  - GANGRENE [None]
  - SKIN ULCER [None]
  - SYMPATHECTOMY [None]
  - CONDITION AGGRAVATED [None]
